FAERS Safety Report 8372985-2 (Version None)
Quarter: 2012Q2

REPORT INFORMATION
  Report Type: 
  Country: None (occurrence: None)
  Receive Date: 20120521
  Receipt Date: 20110920
  Transmission Date: 20120825
  Serious: No
  Sender: FDA-Public Use
  Company Number: US-ASTRAZENECA-2011SE64341

PATIENT
  Sex: Male

DRUGS (4)
  1. SYNTHROID [Concomitant]
     Dosage: UNKNOWN
  2. PRILOSEC OTC [Suspect]
     Route: 048
     Dates: start: 20110720, end: 20110731
  3. MICARDIS HCT [Concomitant]
     Dosage: UNKNOWN
  4. LIPITOR [Concomitant]
     Dosage: UNKNOWN

REACTIONS (3)
  - DRUG HYPERSENSITIVITY [None]
  - DERMATITIS [None]
  - PRURITUS [None]
